FAERS Safety Report 15506650 (Version 2)
Quarter: 2018Q4

REPORT INFORMATION
  Report Type: Spontaneous
  Country: FR (occurrence: FR)
  Receive Date: 20181016
  Receipt Date: 20181108
  Transmission Date: 20190205
  Serious: Yes (Disabling, Other)
  Sender: FDA-Public Use
  Company Number: FR-SA-2018SA284685

PATIENT
  Age: 40 Year
  Sex: Female
  Weight: 58 kg

DRUGS (1)
  1. AUBAGIO [Suspect]
     Active Substance: TERIFLUNOMIDE
     Indication: MULTIPLE SCLEROSIS
     Dosage: 14 MG, QD
     Route: 048
     Dates: start: 20170619, end: 20171211

REACTIONS (2)
  - Tooth extraction [Recovered/Resolved with Sequelae]
  - Tooth abscess [Recovered/Resolved with Sequelae]
